FAERS Safety Report 9283257 (Version 2)
Quarter: 2013Q2

REPORT INFORMATION
  Report Type: Spontaneous
  Country: TR (occurrence: TR)
  Receive Date: 20130510
  Receipt Date: 20130514
  Transmission Date: 20140414
  Serious: Yes (Hospitalization)
  Sender: FDA-Public Use
  Company Number: TR-PFIZER INC-2013129741

PATIENT
  Age: 43 Year
  Sex: Male

DRUGS (3)
  1. CISPLATIN [Suspect]
     Indication: GASTRIC CANCER
     Dosage: 40 MG/DAY, FOR THREE DAYS
     Route: 065
  2. FLUOROURACIL [Suspect]
     Indication: GASTRIC CANCER
     Dosage: 750 MG/DAY, FOR THREE DAYS
     Route: 065
  3. TAXOTERE [Concomitant]
     Indication: GASTRIC CANCER
     Dosage: 120 G/DAY, FOR THE INITIAL DAY
     Route: 065

REACTIONS (2)
  - Peripheral artery thrombosis [Recovered/Resolved]
  - Peripheral artery thrombosis [Recovering/Resolving]
